FAERS Safety Report 7713619-7 (Version None)
Quarter: 2011Q3

REPORT INFORMATION
  Report Type: 
  Country: None (occurrence: None)
  Receive Date: 20110826
  Receipt Date: 20110819
  Transmission Date: 20111222
  Serious: Yes (Hospitalization, Other)
  Sender: FDA-Public Use
  Company Number: US-US-EMD SERONO, INC.-7030041

PATIENT
  Sex: Female
  Weight: 82 kg

DRUGS (6)
  1. REBIF [Suspect]
     Route: 058
     Dates: start: 20101019, end: 20110301
  2. METHOTREXATE [Concomitant]
  3. REBIF [Suspect]
     Indication: MULTIPLE SCLEROSIS
     Route: 058
     Dates: start: 19990101, end: 20100601
  4. REBIF [Suspect]
     Route: 058
     Dates: start: 20110401
  5. TETANUS AND WHOOPING COUGH IMMUNIZATION [Concomitant]
     Dates: start: 20100901, end: 20100901
  6. TYSABRI [Suspect]
     Indication: MULTIPLE SCLEROSIS
     Dates: start: 20100601, end: 20101001

REACTIONS (5)
  - FALL [None]
  - PNEUMONIA [None]
  - ARTHROPATHY [None]
  - PAIN [None]
  - DEPRESSION [None]
